FAERS Safety Report 4350637-3 (Version None)
Quarter: 2004Q2

REPORT INFORMATION
  Report Type: 
  Country: None (occurrence: None)
  Receive Date: 20040427
  Receipt Date: 20040414
  Transmission Date: 20050107
  Serious: Yes (Hospitalization)
  Sender: FDA-Public Use
  Company Number: BDI-006043

PATIENT
  Age: 47 Year
  Sex: Female

DRUGS (10)
  1. IOPAMIDOL/ISOVUE (BATCH: #(S) [Suspect]
     Indication: CATHETERISATION CARDIAC
     Dosage: IA
     Route: 014
     Dates: start: 20040305, end: 20040305
  2. IOPAMIDOL/ISOVUE (BATCH: #(S) [Suspect]
     Indication: CHEST PAIN
     Dosage: IA
     Route: 014
     Dates: start: 20040305, end: 20040305
  3. IOPAMIDOL/ISOVUE (BATCH: #(S) [Suspect]
     Indication: DYSPNOEA
     Dosage: IA
     Route: 014
     Dates: start: 20040305, end: 20040305
  4. METOPROLOL SUCCINATE [Concomitant]
  5. PARNATE [Concomitant]
  6. FLURAZEPAM [Concomitant]
  7. AMITRIPTYLINE HCL [Concomitant]
  8. TRAZODONE HCL [Concomitant]
  9. ACETYLSALICYLIC ACID SRT [Concomitant]
  10. FIORINAL [Concomitant]

REACTIONS (6)
  - AMNESIA [None]
  - CATHETER SITE HAEMORRHAGE [None]
  - DEPRESSED LEVEL OF CONSCIOUSNESS [None]
  - DISORIENTATION [None]
  - HEADACHE [None]
  - VISUAL DISTURBANCE [None]
